FAERS Safety Report 4780833-2 (Version None)
Quarter: 2005Q3

REPORT INFORMATION
  Report Type: 
  Country: None (occurrence: None)
  Receive Date: 20050914
  Receipt Date: 20040803
  Transmission Date: 20060218
  Serious: Yes (Death, Disabling)
  Sender: FDA-Public Use
  Company Number: 163-20785-04080111

PATIENT
  Age: 75 Year
  Sex: Female

DRUGS (1)
  1. THALOMID [Suspect]
     Indication: MULTIPLE MYELOMA
     Dosage: 200 MG, DAILY, ORAL
     Route: 048
     Dates: start: 20030815, end: 20040721

REACTIONS (7)
  - COORDINATION ABNORMAL [None]
  - DEAFNESS [None]
  - DEATH [None]
  - DISEASE PROGRESSION [None]
  - MUSCULAR WEAKNESS [None]
  - OTOTOXICITY [None]
  - TREMOR [None]
